FAERS Safety Report 9565315 (Version 1)
Quarter: 2013Q3

REPORT INFORMATION
  Report Type: Spontaneous
  Country: AU (occurrence: AU)
  Receive Date: 20130930
  Receipt Date: 20130930
  Transmission Date: 20140515
  Serious: Yes (Hospitalization)
  Sender: FDA-Public Use
  Company Number: AU-ASTRAZENECA-2013SE71052

PATIENT
  Age: 83 Year
  Sex: Female

DRUGS (3)
  1. MARCAIN [Suspect]
     Dosage: ONE INJECTION OF 10 ML; TOTAL 20 ML COMBINED LOCAL ANAESTHETIC
     Route: 053
     Dates: start: 20130806, end: 20130806
  2. XYLOCAINE [Suspect]
     Dosage: ONE INJECTION OF 10 ML; TOTAL 20 ML COMBINED LOCAL ANAESTHETIC
     Route: 053
     Dates: start: 20130806, end: 20130806
  3. MORPHINE [Concomitant]
     Dates: start: 20130806

REACTIONS (3)
  - Aphasia [Recovered/Resolved]
  - Electrocardiogram abnormal [Recovered/Resolved]
  - Tinnitus [Recovered/Resolved]
